FAERS Safety Report 6576376-6 (Version None)
Quarter: 2010Q1

REPORT INFORMATION
  Report Type: 
  Country: None (occurrence: None)
  Receive Date: 20100210
  Receipt Date: 20100203
  Transmission Date: 20100710
  Serious: Yes (Other)
  Sender: FDA-Public Use
  Company Number: US-JNJFOC-20100202831

PATIENT
  Sex: Female
  Weight: 56.7 kg

DRUGS (2)
  1. DURAGESIC-100 [Suspect]
     Indication: FIBROMYALGIA
     Route: 062
  2. DURAGESIC-100 [Suspect]
     Dosage: NDC NUMBER# 50458-0093-05
     Route: 062

REACTIONS (7)
  - CONSTIPATION [None]
  - DRUG ADMINISTERED AT INAPPROPRIATE SITE [None]
  - DRUG TOXICITY [None]
  - FEELING OF BODY TEMPERATURE CHANGE [None]
  - GASTROINTESTINAL PAIN [None]
  - PRODUCT QUALITY ISSUE [None]
  - WITHDRAWAL SYNDROME [None]
